FAERS Safety Report 8470449-9 (Version None)
Quarter: 2012Q2

REPORT INFORMATION
  Report Type: 
  Country: None (occurrence: None)
  Receive Date: 20120620
  Receipt Date: 20120608
  Transmission Date: 20120825
  Serious: Yes (Hospitalization)
  Sender: FDA-Public Use
  Company Number: AUR-APL-2011-04559

PATIENT
  Age: 77 Year

DRUGS (7)
  1. BENICAR [Suspect]
     Indication: PRODUCT USED FOR UNKNOWN INDICATION
     Dosage: ORAL,  (DOUBLE DOSE)
     Route: 046
     Dates: start: 20110620, end: 20110622
  2. ASPIRIN [Concomitant]
  3. LISINOPRIL [Suspect]
     Indication: PRODUCT USED FOR UNKNOWN INDICATION
     Dosage: (DOUBLE DOSE), (20 MG)
     Dates: start: 20110620, end: 20110622
  4. METFFORMIN HYDROCHLORIDE [Suspect]
     Indication: TYPE 2 DIABETES MELLITUS
     Dosage: (1000 MG)
  5. HYDROCHLOROTHIAZIDE [Suspect]
     Indication: PRODUCT USED FOR UNKNOWN INDICATION
     Dosage: (DOUBLE DOSE),12.5 MG),
     Dates: start: 20110620, end: 20110622
  6. SAXAGLIPTIN (SAXAGLIPTIN) [Suspect]
     Indication: TYPE 2 DIABETES MELLITUS
     Dates: start: 20100927
  7. VERAPAMIL HYDROCHLORIDE [Suspect]
     Indication: PRODUCT USED FOR UNKNOWN INDICATION
     Dosage: (DOUBLE DOSE), (240 MG),
     Dates: start: 20110620, end: 20110622

REACTIONS (7)
  - INCORRECT DOSE ADMINISTERED [None]
  - DECREASED APPETITE [None]
  - HYPOTENSION [None]
  - NAUSEA [None]
  - VOMITING [None]
  - ASTHENIA [None]
  - DIARRHOEA [None]
